FAERS Safety Report 5585340-5 (Version None)
Quarter: 2008Q1

REPORT INFORMATION
  Report Type: 
  Country: None (occurrence: None)
  Receive Date: 20080104
  Receipt Date: 20080104
  Transmission Date: 20080703
  Serious: Yes (Hospitalization)
  Sender: FDA-Public Use
  Company Number: None

PATIENT
  Age: 68 Year
  Sex: Male
  Weight: 74 kg

DRUGS (2)
  1. OXALIPLATIN [Suspect]
     Indication: NEOPLASM MALIGNANT
     Dosage: 160MG  ONCE   IV
     Route: 042
     Dates: start: 20071211, end: 20071211
  2. BEVACIZUMAB [Suspect]
     Dosage: 750MG  ONCE  IV
     Route: 042
     Dates: start: 20071211, end: 20071211

REACTIONS (4)
  - DEHYDRATION [None]
  - NAUSEA [None]
  - RENAL FAILURE ACUTE [None]
  - VOMITING [None]
